FAERS Safety Report 25033419 (Version 2)
Quarter: 2025Q2

REPORT INFORMATION
  Report Type: Report from Study
  Country: KR (occurrence: KR)
  Receive Date: 20250303
  Receipt Date: 20250410
  Transmission Date: 20250716
  Serious: Yes (Hospitalization)
  Sender: KOWA PHARM
  Company Number: KR-KOWA-24JP000386

PATIENT
  Age: 74 Year
  Sex: Female
  Weight: 50.9 kg

DRUGS (15)
  1. EZETIMIBE\PITAVASTATIN CALCIUM [Suspect]
     Active Substance: EZETIMIBE\PITAVASTATIN CALCIUM
     Indication: Hypercholesterolaemia
     Dosage: 1 DF, QD
     Route: 048
     Dates: start: 20230612, end: 20240125
  2. EZETIMIBE\PITAVASTATIN CALCIUM [Suspect]
     Active Substance: EZETIMIBE\PITAVASTATIN CALCIUM
     Dosage: 1 DF, QD
     Route: 048
     Dates: start: 20240225
  3. MIROGABALIN BESYLATE [Concomitant]
     Active Substance: MIROGABALIN BESYLATE
     Indication: Arthritis reactive
     Dosage: 5 MG, BID
     Route: 048
     Dates: start: 20230522, end: 20240125
  4. RIVOTRIL [Concomitant]
     Active Substance: CLONAZEPAM
     Indication: Partial seizures
     Dosage: 0.5 MG, QD
     Route: 048
     Dates: start: 20230612, end: 20240125
  5. CHOLINE ALFOSCERATE [Concomitant]
     Active Substance: CHOLINE ALFOSCERATE
     Indication: Memory impairment
     Dosage: 800 MG, BID
     Route: 048
     Dates: start: 20230612, end: 20240125
  6. ANPRAN [Concomitant]
     Indication: Ischaemia
     Dosage: 300 MG, QD
     Route: 048
     Dates: start: 20230612, end: 20240125
  7. FEXUCLUE [Concomitant]
     Indication: Arthritis reactive
     Dosage: 40 MG, QD
     Route: 048
     Dates: start: 20230814, end: 20240125
  8. LYRIBEAR [Concomitant]
     Indication: Polyneuropathy
     Route: 048
     Dates: start: 20231120, end: 20240125
  9. MELAKING PR [Concomitant]
     Indication: Prophylaxis
     Route: 048
     Dates: start: 20231120, end: 20240125
  10. DOBESEL [Concomitant]
     Indication: Prophylaxis
     Dosage: 500 MG, BID
     Route: 048
     Dates: start: 20231120, end: 20240125
  11. MELOCOX [Concomitant]
     Indication: Arthritis reactive
     Dosage: 15 MG, BID
     Route: 048
     Dates: start: 20231128, end: 20240125
  12. CALCIUM POLYCARBOPHIL [Concomitant]
     Active Substance: CALCIUM POLYCARBOPHIL
     Indication: Constipation prophylaxis
     Dosage: 2 DF, TID
     Route: 048
     Dates: start: 20240125, end: 20240127
  13. AGIO [Concomitant]
     Indication: Constipation prophylaxis
     Dosage: 6 G, TID
     Route: 048
     Dates: start: 20240125, end: 20240127
  14. ACLOFEN [Concomitant]
     Indication: Arthritis reactive
     Dosage: 100 MG, BID
     Route: 048
     Dates: start: 20240125, end: 20240127
  15. REBAMIPIDE [Concomitant]
     Active Substance: REBAMIPIDE
     Indication: Gastritis prophylaxis
     Dosage: 100 MG, TID
     Route: 048
     Dates: start: 20240125, end: 20240127

REACTIONS (2)
  - Jejunal perforation [Recovered/Resolved]
  - Inguinal hernia [Recovered/Resolved]

NARRATIVE: CASE EVENT DATE: 20230911
